FAERS Safety Report 10045720 (Version 1)
Quarter: 2014Q1

REPORT INFORMATION
  Report Type: Spontaneous
  Country: US (occurrence: None)
  Receive Date: 20140306
  Receipt Date: 20140306
  Transmission Date: 20141002
  Serious: Yes (Hospitalization)
  Sender: FDA-Public Use
  Company Number: 163-21880-13054928

PATIENT
  Age: 85 Year
  Sex: Male

DRUGS (11)
  1. REVLIMID [Suspect]
     Indication: PLASMA CELL MYELOMA
     Dosage: 25 MG, 21 IN 28 D, PO
     Route: 048
     Dates: start: 20130402
  2. ARICEPT (DONEPEZIL HYDROCHLORIDE) [Concomitant]
  3. NAMENDA (MEMANTINE HYDROCHLORIDE) [Concomitant]
  4. CITRUCEL (METHYLCELLULOSE) [Concomitant]
  5. VITAMIN E (TOCOPHEROL) [Concomitant]
  6. CALCIUM 500 (CALCIUM) [Concomitant]
  7. TAMSULOSIN HCL (TAMSULOSIN HYDROCHLORIDE) [Concomitant]
  8. CLONAZEPAM (CLONAZEPAM) [Concomitant]
  9. TYLENOL ARTHRITIS (PARACETAMOL) [Concomitant]
  10. VICODIN (VICODIN) [Concomitant]
  11. BABY ASPIRIN (ACETYLSALICYLIC ACID) [Concomitant]

REACTIONS (1)
  - Pneumonia [None]
